FAERS Safety Report 8585290-6 (Version None)
Quarter: 2012Q3

REPORT INFORMATION
  Report Type: 
  Country: None (occurrence: None)
  Receive Date: 20120810
  Receipt Date: 20120731
  Transmission Date: 20120928
  Serious: Yes (Hospitalization)
  Sender: FDA-Public Use
  Company Number: ES-JNJFOC-20120803977

PATIENT
  Age: 82 Year
  Sex: Female

DRUGS (3)
  1. ASPIRIN [Concomitant]
     Indication: PRODUCT USED FOR UNKNOWN INDICATION
  2. LOSARTAN POTASSIUM [Concomitant]
     Indication: PRODUCT USED FOR UNKNOWN INDICATION
  3. TRAMADOL HCL [Suspect]
     Indication: TENDONITIS
     Dosage: 37.5MG AND 325MG
     Route: 048
     Dates: start: 20120621, end: 20120622

REACTIONS (5)
  - DEPRESSED MOOD [None]
  - VOMITING [None]
  - NAUSEA [None]
  - DIZZINESS [None]
  - HYPERHIDROSIS [None]
